FAERS Safety Report 19469854 (Version 1)
Quarter: 2021Q2

REPORT INFORMATION
  Report Type: Spontaneous
  Country: US (occurrence: US)
  Receive Date: 20210629
  Receipt Date: 20210629
  Transmission Date: 20210717
  Serious: Yes (Other)
  Sender: FDA-Public Use
  Company Number: US-CIPLA LTD.-2021US04457

PATIENT

DRUGS (6)
  1. EMTRICITABINE/TENOFOVIR [Suspect]
     Active Substance: EMTRICITABINE\TENOFOVIR
     Indication: ANTIRETROVIRAL THERAPY
     Dosage: 1 (UNIT NOT SPECIFIED) DAILY DOSE, 1 COURSE
     Route: 048
     Dates: start: 2018
  2. ZIDOVUDINE. [Suspect]
     Active Substance: ZIDOVUDINE
     Indication: ANTIRETROVIRAL THERAPY
     Dosage: 2 (UNIT NOT SPECIFIED), DAILY DOSE, 1 COURSE
     Route: 042
     Dates: start: 2018, end: 2018
  3. COBICISTAT;ELVITEGRAVIR;EMTRICITABINE;TENOFOVIR ALAFENAMIDE [Suspect]
     Active Substance: COBICISTAT\ELVITEGRAVIR\EMTRICITABINE\TENOFOVIR ALAFENAMIDE FUMARATE
     Indication: ANTIRETROVIRAL THERAPY
     Dosage: 1 (UNIT NOT SPECIFIED) DAILY DOSE, 1 COURSE
     Route: 048
     Dates: end: 2018
  4. ATAZANAVIR. [Suspect]
     Active Substance: ATAZANAVIR
     Indication: ANTIRETROVIRAL THERAPY
     Dosage: 1 (UNITS NOT SPECIFIED) DAILY DOSE, 1 COURSE
     Route: 048
     Dates: start: 2018
  5. ZIDOVUDINE. [Suspect]
     Active Substance: ZIDOVUDINE
     Dosage: 1 (UNIT NOT SPECIFIED), DAILY DOSE, 2 COURSES
     Route: 042
     Dates: start: 2018, end: 2018
  6. RITONAVIR. [Suspect]
     Active Substance: RITONAVIR
     Indication: ANTIRETROVIRAL THERAPY
     Dosage: 1 (UNIT NOT SPECIFIED), DAILY DOSE, 1 COURSE
     Route: 048
     Dates: start: 2018

REACTIONS (2)
  - Premature delivery [Unknown]
  - Exposure during pregnancy [Unknown]

NARRATIVE: CASE EVENT DATE: 2018
